FAERS Safety Report 23111645 (Version 1)
Quarter: 2023Q4

REPORT INFORMATION
  Report Type: Spontaneous
  Country: BR (occurrence: BR)
  Receive Date: 20231026
  Receipt Date: 20231026
  Transmission Date: 20240110
  Serious: Yes (Other)
  Sender: FDA-Public Use
  Company Number: BR-002147023-NVSC2023BR227953

PATIENT
  Sex: Female

DRUGS (5)
  1. KISQALI [Suspect]
     Active Substance: RIBOCICLIB
     Indication: Product used for unknown indication
     Dosage: 200 MG (63 TABLETS)
     Route: 065
  2. KISQALI [Suspect]
     Active Substance: RIBOCICLIB
     Dosage: 200 MG (63 TABLETS)
     Route: 065
     Dates: start: 20221110
  3. KISQALI [Suspect]
     Active Substance: RIBOCICLIB
     Dosage: 200 MG (63 TABLETS)
     Route: 065
     Dates: start: 20230124
  4. KISQALI [Suspect]
     Active Substance: RIBOCICLIB
     Dosage: 200 MG (63 TABLETS)
     Route: 065
     Dates: start: 20230328
  5. KISQALI [Suspect]
     Active Substance: RIBOCICLIB
     Dosage: 200 MG (63 TABLETS)
     Route: 065
     Dates: start: 20230601

REACTIONS (8)
  - Metastases to bone [Unknown]
  - Metastases to lung [Unknown]
  - Breast cancer [Unknown]
  - Musculoskeletal chest pain [Recovered/Resolved]
  - Spinal pain [Unknown]
  - Hypersensitivity [Recovered/Resolved]
  - Pain in extremity [Unknown]
  - Expired product administered [Unknown]

NARRATIVE: CASE EVENT DATE: 20190101
